FAERS Safety Report 9840467 (Version 1)
Quarter: 2013Q4

REPORT INFORMATION
  Report Type: Spontaneous
  Country: US (occurrence: None)
  Receive Date: 20131223
  Receipt Date: 20131223
  Transmission Date: 20140711
  Serious: Yes (Other)
  Sender: FDA-Public Use
  Company Number: 220415LEO

PATIENT
  Age: 62 Year
  Sex: Female

DRUGS (6)
  1. PICATO [Suspect]
     Indication: ACTINIC KERATOSIS
     Dosage: 1 IN 1 D, DERMAL
     Dates: start: 20130202
  2. LOSARTAN POTASSIUM (LOSARTAN POTASSIUM) [Concomitant]
  3. PROGESTERONE (PROGESTERONE) [Concomitant]
  4. BUPROPION HCL XL (BUPROPION HYDROCHLORIDE) [Concomitant]
  5. ARMOUR THYROID (THYROID) [Concomitant]
  6. VITAMIN SUPPLEMENTS (VITAMIN NOS) [Concomitant]

REACTIONS (3)
  - Application site vesicles [None]
  - Application site erythema [None]
  - Incorrect drug administration duration [None]
